FAERS Safety Report 15723361 (Version 6)
Quarter: 2019Q1

REPORT INFORMATION
  Report Type: Spontaneous
  Country: US (occurrence: US)
  Receive Date: 20181214
  Receipt Date: 20190327
  Transmission Date: 20190417
  Serious: Yes (Other)
  Sender: FDA-Public Use
  Company Number: US-SA-2018SA339667

PATIENT
  Age: 78 Year
  Sex: Male
  Weight: 78.01 kg

DRUGS (1)
  1. DUPIXENT [Suspect]
     Active Substance: DUPILUMAB
     Indication: DERMATITIS ATOPIC
     Dosage: 300 MG, QOW
     Route: 058
     Dates: start: 20181015

REACTIONS (7)
  - Hordeolum [Recovering/Resolving]
  - Tinea cruris [Not Recovered/Not Resolved]
  - Musculoskeletal pain [Unknown]
  - Muscle rupture [Not Recovered/Not Resolved]
  - Conjunctivitis [Recovered/Resolved]
  - Asthenia [Not Recovered/Not Resolved]
  - Eczema [Not Recovered/Not Resolved]

NARRATIVE: CASE EVENT DATE: 20180615
